FAERS Safety Report 16871892 (Version 1)
Quarter: 2019Q4

REPORT INFORMATION
  Report Type: Spontaneous
  Country: SE (occurrence: SE)
  Receive Date: 20191001
  Receipt Date: 20191001
  Transmission Date: 20200122
  Serious: Yes (Disabling)
  Sender: FDA-Public Use
  Company Number: SE-009507513-1909SWE008856

PATIENT
  Age: 54 Year
  Sex: Male

DRUGS (7)
  1. SAROTEN [Concomitant]
     Active Substance: AMITRIPTYLINE
     Dosage: UNK
     Dates: start: 20150101
  2. EZETROL [Concomitant]
     Active Substance: EZETIMIBE
     Dates: start: 20180131
  3. NOVORAPID [Concomitant]
     Active Substance: INSULIN ASPART
     Dates: start: 20100101
  4. STEGLATRO [Suspect]
     Active Substance: ERTUGLIFLOZIN PIDOLATE
     Indication: TYPE 2 DIABETES MELLITUS
     Dosage: 5 MILLIGRAM, QD, FILM-COATED TABLET
     Route: 048
     Dates: start: 20190627, end: 20190902
  5. GLYBURIDE. [Concomitant]
     Active Substance: GLYBURIDE
     Dates: start: 20180622
  6. ESOMEPRAZOLE. [Concomitant]
     Active Substance: ESOMEPRAZOLE MAGNESIUM
     Dosage: UNK
     Dates: start: 2011
  7. XULTOPHY 100/3.6 [Concomitant]
     Active Substance: INSULIN DEGLUDEC\LIRAGLUTIDE
     Dates: start: 20190627

REACTIONS (1)
  - Gangrene [Not Recovered/Not Resolved]

NARRATIVE: CASE EVENT DATE: 20190715
